FAERS Safety Report 16378216 (Version 3)
Quarter: 2022Q1

REPORT INFORMATION
  Report Type: Report from Study
  Country: US (occurrence: US)
  Receive Date: 20190531
  Receipt Date: 20220323
  Transmission Date: 20220423
  Serious: Yes (Hospitalization)
  Sender: FDA-Public Use
  Company Number: US-PFIZER INC-2019226401

PATIENT
  Age: 2 Year
  Sex: Male
  Weight: 19.9 kg

DRUGS (5)
  1. VINCRISTINE SULFATE [Suspect]
     Active Substance: VINCRISTINE SULFATE
     Indication: Acute lymphocytic leukaemia
     Dosage: 1.5 MILLIGRAM/SQ. METER, X2
     Route: 042
     Dates: start: 20190501
  2. METHOTREXATE SODIUM [Suspect]
     Active Substance: METHOTREXATE SODIUM
     Indication: Acute lymphocytic leukaemia
     Dosage: 10 MG, WEEKLY
     Route: 037
     Dates: start: 20190416
  3. RUXOLITINIB [Suspect]
     Active Substance: RUXOLITINIB
     Indication: Acute lymphocytic leukaemia
     Dosage: 50 MILLIGRAM/SQ. METER, BID
     Route: 048
     Dates: start: 20190416
  4. PEGASPARGASE [Suspect]
     Active Substance: PEGASPARGASE
     Indication: Acute lymphocytic leukaemia
     Dosage: 2500 IU/M2/DOSE
     Route: 042
     Dates: start: 20190430, end: 20190430
  5. PEGASPARGASE [Suspect]
     Active Substance: PEGASPARGASE
     Dosage: 2500 IU/M2/DOSE
     Route: 042
     Dates: start: 20190430

REACTIONS (2)
  - Staphylococcal infection [Recovered/Resolved]
  - Hypersensitivity [Recovered/Resolved]

NARRATIVE: CASE EVENT DATE: 20190430
